FAERS Safety Report 8911539 (Version 2)
Quarter: 2012Q4

REPORT INFORMATION
  Report Type: 
  Country: FR (occurrence: FR)
  Receive Date: 20121116
  Receipt Date: 20121223
  Transmission Date: 20130627
  Serious: Yes (Other)
  Sender: FDA-Public Use
  Company Number: FR-JNJFOC-20121105093

PATIENT
  Age: 50 Year
  Sex: Female
  Weight: 58 kg

DRUGS (5)
  1. REMICADE [Suspect]
     Indication: CROHN^S DISEASE
     Route: 042
     Dates: start: 20120724
  2. REMICADE [Suspect]
     Indication: CROHN^S DISEASE
     Route: 042
     Dates: start: 20120609
  3. REMICADE [Suspect]
     Indication: CROHN^S DISEASE
     Route: 042
     Dates: start: 20120522
  4. REMICADE [Suspect]
     Indication: CROHN^S DISEASE
     Dosage: fourth infusion
     Route: 042
     Dates: start: 20120918
  5. REMICADE [Suspect]
     Indication: CROHN^S DISEASE
     Route: 042
     Dates: start: 20121127

REACTIONS (9)
  - Psoriasis [Recovering/Resolving]
  - Oral lichen planus [Recovering/Resolving]
  - Rash pustular [Unknown]
  - Mucosal inflammation [Unknown]
  - Pruritus [Unknown]
  - Arthralgia [Unknown]
  - Subcutaneous abscess [Unknown]
  - Hypersensitivity [Unknown]
  - Infusion related reaction [Unknown]
